FAERS Safety Report 13353523 (Version 1)
Quarter: 2017Q1

REPORT INFORMATION
  Report Type: Spontaneous
  Country: FR (occurrence: FR)
  Receive Date: 20170321
  Receipt Date: 20170321
  Transmission Date: 20170429
  Serious: Yes (Hospitalization, Other)
  Sender: FDA-Public Use
  Company Number: FR-ZYDUS-014298

PATIENT
  Age: 63 Year
  Sex: Male

DRUGS (1)
  1. METFORMIN [Suspect]
     Active Substance: METFORMIN HYDROCHLORIDE
     Indication: TYPE 2 DIABETES MELLITUS
     Route: 065

REACTIONS (15)
  - Acute kidney injury [Unknown]
  - Dehydration [Recovered/Resolved]
  - Blood pressure decreased [Recovered/Resolved]
  - Vomiting [Unknown]
  - Skin discolouration [Unknown]
  - Somnolence [Unknown]
  - Circulatory collapse [Recovered/Resolved]
  - Anion gap increased [Recovered/Resolved]
  - Hyperkalaemia [Recovered/Resolved]
  - Blood bicarbonate decreased [Recovered/Resolved]
  - Gastroenteritis [Unknown]
  - Diarrhoea [Unknown]
  - Kussmaul respiration [Unknown]
  - Lactic acidosis [Unknown]
  - Septic shock [Unknown]
